FAERS Safety Report 4382820-5 (Version None)
Quarter: 2004Q2

REPORT INFORMATION
  Report Type: 
  Country: None (occurrence: None)
  Receive Date: 20040602
  Receipt Date: 20031001
  Transmission Date: 20050107
  Serious: Yes (Life-Threatening, Hospitalization, Other)
  Sender: FDA-Public Use
  Company Number: NSADSS2002019152

PATIENT
  Age: 41 Year
  Sex: Female
  Weight: 54.4316 kg

DRUGS (11)
  1. PROPULSID [Suspect]
     Indication: ABDOMINAL PAIN
     Dosage: 10 MG, 4 IN 1 DAY, ORAL
     Route: 048
     Dates: start: 19940806, end: 19971111
  2. SYNTHROID [Concomitant]
  3. CREON [Concomitant]
  4. CARAFATE [Concomitant]
  5. LANOXIN [Concomitant]
  6. PREVACID [Concomitant]
  7. PROVERA [Concomitant]
  8. INSULIN [Concomitant]
  9. RITALIN (METHYPHENIDATE HYDROCHLORIDE) [Concomitant]
  10. WELLBUTRIN [Concomitant]
  11. CAPOTEN [Concomitant]

REACTIONS (10)
  - ABDOMINAL PAIN [None]
  - ANXIETY [None]
  - CARDIAC DISORDER [None]
  - CARDIOMYOPATHY [None]
  - CHEST PAIN [None]
  - COLLAGEN DISORDER [None]
  - DIARRHOEA [None]
  - ELECTROCARDIOGRAM QT PROLONGED [None]
  - LUNG NEOPLASM [None]
  - MITRAL VALVE PROLAPSE [None]
